FAERS Safety Report 7258634-5 (Version None)
Quarter: 2011Q1

REPORT INFORMATION
  Report Type: 
  Country: None (occurrence: None)
  Receive Date: 20110129
  Receipt Date: 20100502
  Transmission Date: 20110831
  Serious: No
  Sender: FDA-Public Use
  Company Number: US-ABBOTT-08P-163-0471659-00

PATIENT
  Sex: Male
  Weight: 82.628 kg

DRUGS (3)
  1. HUMIRA [Suspect]
     Indication: CROHN'S DISEASE
     Route: 050
     Dates: start: 20080201
  2. CIPRO [Concomitant]
     Indication: CROHN'S DISEASE
     Route: 048
  3. VICODIN [Concomitant]
     Indication: PAIN
     Route: 048

REACTIONS (4)
  - CROHN'S DISEASE [None]
  - WEIGHT DECREASED [None]
  - DRUG INEFFECTIVE [None]
  - SOMNOLENCE [None]
